FAERS Safety Report 24992283 (Version 1)
Quarter: 2025Q1

REPORT INFORMATION
  Report Type: Spontaneous
  Country: FR (occurrence: FR)
  Receive Date: 20250220
  Receipt Date: 20250220
  Transmission Date: 20250409
  Serious: Yes (Hospitalization, Other)
  Sender: SANOFI AVENTIS
  Company Number: FR-DialogSolutions-SAAVPROD-PI741635-C1

PATIENT
  Age: 45 Year
  Sex: Female
  Weight: 88 kg

DRUGS (2)
  1. ENOXAPARIN SODIUM [Suspect]
     Active Substance: ENOXAPARIN SODIUM
     Indication: Disseminated intravascular coagulation
     Dosage: 8000 IU, BID
  2. HEPARIN [Concomitant]
     Active Substance: HEPARIN SODIUM
     Indication: Disseminated intravascular coagulation

REACTIONS (3)
  - Disseminated intravascular coagulation [Recovered/Resolved]
  - Acquired antithrombin III deficiency [Recovered/Resolved]
  - Heparin-induced thrombocytopenia [Recovering/Resolving]
